FAERS Safety Report 20252161 (Version 1)
Quarter: 2021Q4

REPORT INFORMATION
  Report Type: Report from Study
  Country: US (occurrence: US)
  Receive Date: 20211229
  Receipt Date: 20211229
  Transmission Date: 20220303
  Serious: No
  Sender: FDA-Public Use
  Company Number: US-CLOVIS ONCOLOGY-CLO-2021-000075

PATIENT
  Sex: Male

DRUGS (3)
  1. RUBRACA [Suspect]
     Active Substance: RUCAPARIB CAMSYLATE
     Indication: Lung neoplasm malignant
     Dosage: 300 MILLIGRAM, BID
     Route: 048
     Dates: start: 20201212
  2. RUBRACA [Suspect]
     Active Substance: RUCAPARIB CAMSYLATE
     Indication: Bronchial neoplasm
     Dosage: 600 MILLIGRAM, BID
     Route: 048
     Dates: start: 20201212
  3. RUBRACA [Suspect]
     Active Substance: RUCAPARIB CAMSYLATE
     Dosage: 600 MILLIGRAM, BID
     Route: 048
     Dates: start: 20201212

REACTIONS (8)
  - Weight decreased [Not Recovered/Not Resolved]
  - Pain [Unknown]
  - Renal disorder [Unknown]
  - Dyspepsia [Not Recovered/Not Resolved]
  - Vomiting [Unknown]
  - Regurgitation [Unknown]
  - Product dose omission issue [Unknown]
  - Product use in unapproved indication [Unknown]
